FAERS Safety Report 20041313 (Version 2)
Quarter: 2022Q1

REPORT INFORMATION
  Report Type: Spontaneous
  Country: JP (occurrence: JP)
  Receive Date: 20211107
  Receipt Date: 20220105
  Transmission Date: 20220424
  Serious: Yes (Hospitalization)
  Sender: FDA-Public Use
  Company Number: JP-CHUGAI-2021025310

PATIENT
  Age: 74 Year
  Sex: Male
  Weight: 60.7 kg

DRUGS (4)
  1. TECENTRIQ [Suspect]
     Active Substance: ATEZOLIZUMAB
     Indication: Non-small cell lung cancer
     Dosage: 1500 MILLIGRAM, SINGLE?DATE OF MOST RECENT DOSE: 14/OCT/2021
     Route: 041
     Dates: start: 20211014
  2. AVASTIN [Suspect]
     Active Substance: BEVACIZUMAB
     Indication: Non-small cell lung cancer
     Dosage: 15 MILLIGRAM/KILOGRAM, SINGLE?DATE OF MOST RECENT DOSE: 19/OCT/2021
     Route: 041
     Dates: start: 20211019
  3. CARBOPLATIN [Concomitant]
     Active Substance: CARBOPLATIN
     Indication: Non-small cell lung cancer
     Dosage: UNK UNK, SINGLE
     Route: 041
     Dates: start: 20211019, end: 20211019
  4. PACLITAXEL [Concomitant]
     Active Substance: PACLITAXEL
     Indication: Non-small cell lung cancer
     Dosage: UNK UNK, SINGLE
     Route: 041
     Dates: start: 20211019, end: 20211019

REACTIONS (3)
  - Peritonitis [Recovered/Resolved]
  - Impaired healing [Not Recovered/Not Resolved]
  - Lower gastrointestinal perforation [Recovering/Resolving]

NARRATIVE: CASE EVENT DATE: 20211021
